FAERS Safety Report 6775414-5 (Version None)
Quarter: 2010Q2

REPORT INFORMATION
  Report Type: 
  Country: None (occurrence: None)
  Receive Date: 20100617
  Receipt Date: 20100608
  Transmission Date: 20101027
  Serious: Yes (Hospitalization, Other)
  Sender: FDA-Public Use
  Company Number: JP-PFIZER INC-2010054222

PATIENT
  Sex: Male
  Weight: 39.909 kg

DRUGS (7)
  1. ZOLOFT [Suspect]
     Indication: DEPRESSION
     Dosage: 25 MG, 1X/DAY
     Route: 048
     Dates: start: 20100303, end: 20100401
  2. ZOLOFT [Suspect]
     Indication: ADJUSTMENT DISORDER
  3. SOLANAX [Suspect]
     Indication: ADJUSTMENT DISORDER
     Dosage: 0.8 MG, 1X/DAY
     Route: 048
     Dates: start: 20100219, end: 20100309
  4. LENDORMIN [Suspect]
     Dosage: 0.25 MG, DAILY
     Dates: start: 20100219
  5. HALCION [Concomitant]
     Indication: INSOMNIA
     Dosage: 0.25 MG, 1X/DAY
     Route: 048
     Dates: start: 20100309, end: 20100401
  6. ROHYPNOL [Concomitant]
     Indication: INSOMNIA
     Dosage: 1 MG, 1X/DAY
     Route: 048
     Dates: start: 20100305
  7. MAGNESIUM OXIDE [Concomitant]
     Indication: CONSTIPATION
     Dosage: 1.5 G, 3X/DAY
     Route: 048
     Dates: start: 20100315

REACTIONS (2)
  - HEPATIC FUNCTION ABNORMAL [None]
  - NORMOCHROMIC NORMOCYTIC ANAEMIA [None]
